FAERS Safety Report 17138020 (Version 2)
Quarter: 2019Q4

REPORT INFORMATION
  Report Type: Report from Study
  Country: None (occurrence: AT)
  Receive Date: 20191211
  Receipt Date: 20191213
  Transmission Date: 20200122
  Serious: Yes (Death)
  Sender: FDA-Public Use
  Company Number: AT-ABBVIE-19K-009-3189176-00

PATIENT
  Age: 75 Year
  Sex: Male

DRUGS (1)
  1. DUODOPA [Suspect]
     Active Substance: CARBIDOPA\LEVODOPA
     Indication: PARKINSON^S DISEASE
     Dosage: MD: 10 ML CR DAYTIME: 5,4 ML ED: 2 ML?20 MG/ML 5 MG/ML, 16H THERAPY
     Route: 050
     Dates: start: 20180927

REACTIONS (1)
  - Death [Fatal]

NARRATIVE: CASE EVENT DATE: 20191127
